FAERS Safety Report 12816958 (Version 1)
Quarter: 2016Q4

REPORT INFORMATION
  Report Type: Spontaneous
  Country: US (occurrence: US)
  Receive Date: 20161005
  Receipt Date: 20161005
  Transmission Date: 20170207
  Serious: Yes (Death, Other)
  Sender: FDA-Public Use
  Company Number: US-BAYER-2016-185871

PATIENT
  Age: 58 Year
  Sex: Female

DRUGS (11)
  1. LEVOFLOXACIN. [Concomitant]
     Active Substance: LEVOFLOXACIN
     Indication: LIVER ABSCESS
  2. CYTARABINE. [Concomitant]
     Active Substance: CYTARABINE
     Indication: LIVER ABSCESS
  3. CIPROFLOXACIN. [Concomitant]
     Active Substance: CIPROFLOXACIN
     Indication: ESCHERICHIA BACTERAEMIA
  4. VORICONAZOLE. [Concomitant]
     Active Substance: VORICONAZOLE
     Indication: LIVER ABSCESS
  5. AMPHOTERICIN [Concomitant]
     Active Substance: AMPHOTERICIN B
     Dosage: 3 MG/KG UNK
  6. POSACONAZOLE [Concomitant]
     Active Substance: POSACONAZOLE
     Indication: LIVER ABSCESS
  7. MOXIFLOXACIN ORAL [Suspect]
     Active Substance: MOXIFLOXACIN
     Indication: LIVER ABSCESS
  8. METRONIDAZOLE. [Concomitant]
     Active Substance: METRONIDAZOLE
  9. VALACICLOVIR [Concomitant]
     Active Substance: VALACYCLOVIR HYDROCHLORIDE
     Indication: LIVER ABSCESS
  10. IDARUBICIN [Concomitant]
     Active Substance: IDARUBICIN
     Indication: LIVER ABSCESS
  11. AMPHOTERICIN [Concomitant]
     Active Substance: AMPHOTERICIN B
     Dosage: 5 MG/KG EVERY 24 HOURS

REACTIONS (6)
  - Acute myeloid leukaemia [Fatal]
  - Abdominal tenderness [None]
  - Gastrointestinal haemorrhage [None]
  - Off label use [None]
  - Febrile neutropenia [None]
  - Thrombocytopenia [None]
